FAERS Safety Report 5096207-3 (Version None)
Quarter: 2006Q3

REPORT INFORMATION
  Report Type: 
  Country: None (occurrence: None)
  Receive Date: 20060905
  Receipt Date: 20060818
  Transmission Date: 20061208
  Serious: Yes (Other)
  Sender: FDA-Public Use
  Company Number: CH-ROCHE-460085

PATIENT
  Age: 48 Year
  Sex: Female

DRUGS (3)
  1. ROCEPHIN [Suspect]
     Indication: DRUG USE FOR UNKNOWN INDICATION
     Dosage: DRUG REPORTED AS ROCEPHIN 2 G I.V. TROCKENAMPULLEN. FORM REPORTED AS AMPOULES, INTRAVENOUS.
     Route: 065
     Dates: start: 20060726, end: 20060727
  2. PARACETAMOL [Suspect]
     Route: 048
     Dates: start: 20060630, end: 20060722
  3. FLAGYL [Suspect]
     Indication: DRUG USE FOR UNKNOWN INDICATION
     Dosage: REPORTED AS FLAGYL 500 TABLETTEN.
     Route: 065
     Dates: start: 20060726, end: 20060727

REACTIONS (1)
  - HEPATOCELLULAR DAMAGE [None]
